FAERS Safety Report 15632003 (Version 1)
Quarter: 2018Q4

REPORT INFORMATION
  Report Type: Report from Study
  Country: US (occurrence: US)
  Receive Date: 20181119
  Receipt Date: 20181119
  Transmission Date: 20190205
  Serious: Yes (Other)
  Sender: FDA-Public Use
  Company Number: US-PFIZER INC-2018470584

PATIENT
  Age: 52 Year
  Sex: Female

DRUGS (2)
  1. IBRANCE [Suspect]
     Active Substance: PALBOCICLIB
     Dosage: 100 MG, CYCLIC (DAILY/21 DAYS ON MEDICATION, 7 DAYS OFF)
     Route: 048
     Dates: start: 20181106
  2. IBRANCE [Suspect]
     Active Substance: PALBOCICLIB
     Indication: BREAST CANCER FEMALE
     Dosage: 125 MG, CYCLIC (DAILY/21 DAYS ON MEDICATION, 7 DAYS OFF)
     Route: 048
     Dates: start: 201808

REACTIONS (5)
  - Bone marrow failure [Unknown]
  - Alopecia [Unknown]
  - Fatigue [Unknown]
  - Liver disorder [Unknown]
  - White blood cell count decreased [Unknown]

NARRATIVE: CASE EVENT DATE: 2018
